APPROVED DRUG PRODUCT: MORPHINE SULFATE
Active Ingredient: MORPHINE SULFATE
Strength: 100MG/5ML
Dosage Form/Route: SOLUTION;ORAL
Application: A208809 | Product #001
Applicant: HIKMA PHARMACEUTICALS USA INC
Approved: Jul 6, 2017 | RLD: No | RS: No | Type: DISCN